FAERS Safety Report 7619683-8 (Version None)
Quarter: 2011Q3

REPORT INFORMATION
  Report Type: 
  Country: None (occurrence: None)
  Receive Date: 20110719
  Receipt Date: 20110712
  Transmission Date: 20111222
  Serious: Yes (Other)
  Sender: FDA-Public Use
  Company Number: US-BAYER-2011-051319

PATIENT
  Age: 25 Year
  Sex: Female
  Weight: 104.31 kg

DRUGS (1)
  1. MIRENA [Suspect]
     Indication: CONTRACEPTION
     Dosage: 20 MCG/24HR, CONT
     Route: 015
     Dates: start: 20110211

REACTIONS (7)
  - THROAT IRRITATION [None]
  - MENSTRUATION DELAYED [None]
  - EAR DISCOMFORT [None]
  - PHARYNGITIS [None]
  - NASOPHARYNGITIS [None]
  - VAGINAL HAEMORRHAGE [None]
  - COUGH [None]
